FAERS Safety Report 5408696-2 (Version None)
Quarter: 2007Q3

REPORT INFORMATION
  Report Type: 
  Country: None (occurrence: None)
  Receive Date: 20070808
  Receipt Date: 20070802
  Transmission Date: 20080115
  Serious: Yes (Other)
  Sender: FDA-Public Use
  Company Number: A0667919A

PATIENT
  Age: 76 Year
  Sex: Female

DRUGS (3)
  1. ADVAIR DISKUS 100/50 [Suspect]
     Dosage: 1PUFF SEE DOSAGE TEXT
     Route: 055
     Dates: start: 20070101
  2. VICODIN [Concomitant]
  3. AVELOX [Concomitant]

REACTIONS (7)
  - BRONCHITIS CHRONIC [None]
  - CHEST PAIN [None]
  - COUGH [None]
  - DRUG INEFFECTIVE [None]
  - PLEURISY [None]
  - PNEUMONIA [None]
  - WHEEZING [None]
